FAERS Safety Report 23206790 (Version 1)
Quarter: 2023Q4

REPORT INFORMATION
  Report Type: Spontaneous
  Country: NL (occurrence: NL)
  Receive Date: 20231120
  Receipt Date: 20231120
  Transmission Date: 20240109
  Serious: Yes (Life-Threatening, Hospitalization)
  Sender: FDA-Public Use
  Company Number: NL-TEVA-2023-NL-2947588

PATIENT
  Sex: Male

DRUGS (2)
  1. METHOTREXATE [Suspect]
     Active Substance: METHOTREXATE
     Indication: Suicide attempt
     Dosage: INGESTED 10MG 10 TABLETS
     Route: 048
  2. DAPSONE [Suspect]
     Active Substance: DAPSONE
     Indication: Suicide attempt
     Dosage: INGESTED 100MG TABLETS MORE THAN 200
     Route: 048

REACTIONS (11)
  - Methaemoglobinaemia [Recovered/Resolved]
  - Intentional overdose [Unknown]
  - Toxicity to various agents [Recovered/Resolved]
  - Vomiting [Recovered/Resolved]
  - Confusional state [Recovered/Resolved]
  - Cyanosis [Recovered/Resolved]
  - Nausea [Recovered/Resolved]
  - Abdominal discomfort [Recovered/Resolved]
  - Hepatitis [Recovered/Resolved]
  - Pulmonary artery thrombosis [Recovered/Resolved]
  - Taste disorder [Recovered/Resolved]
